FAERS Safety Report 25136403 (Version 1)
Quarter: 2025Q1

REPORT INFORMATION
  Report Type: Spontaneous
  Country: CN (occurrence: CN)
  Receive Date: 20250328
  Receipt Date: 20250328
  Transmission Date: 20250409
  Serious: Yes (Other)
  Sender: NOVO NORDISK
  Company Number: CN-NOVOPROD-1394452

PATIENT
  Age: 70 Year
  Sex: Female
  Weight: 48 kg

DRUGS (2)
  1. NOVORAPID [Suspect]
     Active Substance: INSULIN ASPART
     Indication: Type 2 diabetes mellitus
  2. NOVOLIN R [Suspect]
     Active Substance: INSULIN HUMAN
     Indication: Type 2 diabetes mellitus

REACTIONS (4)
  - Retinal haemorrhage [Unknown]
  - Macular degeneration [Unknown]
  - Blindness [Unknown]
  - Cataract [Unknown]

NARRATIVE: CASE EVENT DATE: 20080101
